FAERS Safety Report 10488413 (Version 2)
Quarter: 2016Q2

REPORT INFORMATION
  Report Type: Spontaneous
  Country: US (occurrence: US)
  Receive Date: 20140815
  Receipt Date: 20160412
  Transmission Date: 20160815
  Serious: Yes (Hospitalization, Other)
  Sender: FDA-Public Use
  Company Number: ADR-2013-01550

PATIENT
  Sex: Male

DRUGS (1)
  1. LIORESAL [Suspect]
     Active Substance: BACLOFEN
     Route: 037

REACTIONS (11)
  - Staphylococcus test positive [Unknown]
  - Erythema [Unknown]
  - Medical device site discharge [Unknown]
  - Muscle spasticity [Unknown]
  - Meningitis [Unknown]
  - Pocket erosion [Unknown]
  - Drug withdrawal syndrome [Unknown]
  - Swelling [Unknown]
  - Pyrexia [Unknown]
  - Wound [Unknown]
  - Medical device site infection [Unknown]
